FAERS Safety Report 25879331 (Version 3)
Quarter: 2025Q4

REPORT INFORMATION
  Report Type: Spontaneous
  Country: EU (occurrence: EU)
  Receive Date: 20251003
  Receipt Date: 20251217
  Transmission Date: 20260118
  Serious: Yes (Life-Threatening, Hospitalization)
  Sender: TAIHO ONCOLOGY INC
  Company Number: None

PATIENT
  Age: 82 Year
  Sex: Female

DRUGS (1)
  1. INQOVI [Suspect]
     Active Substance: CEDAZURIDINE\DECITABINE
     Indication: Myelodysplastic syndrome with excess blasts
     Dosage: 1 DF (35 MG/100 MG), QD (24 H) (5 TABLETS) 5 FIRST DAYS OF CYCLE (28-DAY CYCLES)
     Route: 048
     Dates: start: 20250707, end: 20250711

REACTIONS (2)
  - Agranulocytosis [Recovering/Resolving]
  - Pancytopenia [Recovering/Resolving]

NARRATIVE: CASE EVENT DATE: 20250726
